FAERS Safety Report 8085016-9 (Version None)
Quarter: 2012Q1

REPORT INFORMATION
  Report Type: 
  Country: None (occurrence: None)
  Receive Date: 20120128
  Receipt Date: 20110310
  Transmission Date: 20120608
  Serious: No
  Sender: FDA-Public Use
  Company Number: US-ABBOTT-11P-163-0711171-00

PATIENT
  Weight: 133.93 kg

DRUGS (4)
  1. METHOTREXATE [Concomitant]
     Indication: RHEUMATOID ARTHRITIS
     Dosage: 4 PILLS EVERY FRIDAY
  2. FOLIC ACID [Concomitant]
     Indication: VITAMIN SUPPLEMENTATION
  3. HUMIRA [Suspect]
     Indication: RHEUMATOID ARTHRITIS
     Dates: start: 20101201
  4. CEFDINIR [Concomitant]
     Indication: INFECTION

REACTIONS (8)
  - INJECTION SITE HAEMATOMA [None]
  - EYE INFECTION [None]
  - INFLUENZA [None]
  - OCULAR HYPERAEMIA [None]
  - INFECTION [None]
  - RHINORRHOEA [None]
  - OROPHARYNGEAL PAIN [None]
  - PYREXIA [None]
